FAERS Safety Report 5858851-2 (Version None)
Quarter: 2008Q3

REPORT INFORMATION
  Report Type: 
  Country: None (occurrence: None)
  Receive Date: 20080826
  Receipt Date: 20080818
  Transmission Date: 20090109
  Serious: Yes (Hospitalization)
  Sender: FDA-Public Use
  Company Number: US-GENENTECH-266519

PATIENT
  Age: 55 Year
  Sex: Male

DRUGS (3)
  1. BEVACIZUMAB [Suspect]
     Indication: TONGUE NEOPLASM MALIGNANT STAGE UNSPECIFIED
     Dosage: 15 MG/KG, UNK
     Route: 042
  2. CISPLATIN [Concomitant]
     Indication: SQUAMOUS CELL CARCINOMA
     Dosage: 50 MG/KG, UNK
     Route: 042
     Dates: start: 20080625
  3. RADIATION [Concomitant]
     Indication: SQUAMOUS CELL CARCINOMA
     Dosage: UNK
     Dates: start: 20080625

REACTIONS (2)
  - FEBRILE NEUTROPENIA [None]
  - LYMPHOPENIA [None]
